FAERS Safety Report 14914928 (Version 1)
Quarter: 2018Q2

REPORT INFORMATION
  Report Type: Spontaneous
  Country: US (occurrence: US)
  Receive Date: 20180501
  Receipt Date: 20180501
  Transmission Date: 20180711
  Serious: Yes (Death, Hospitalization)
  Sender: FDA-Public Use
  Company Number: None

PATIENT
  Age: 62 Year
  Sex: Male

DRUGS (1)
  1. APIXABAN [Suspect]
     Active Substance: APIXABAN
     Indication: ATRIAL FIBRILLATION
     Dates: start: 20180316, end: 20180316

REACTIONS (8)
  - Multi-organ disorder [None]
  - Hepatic enzyme increased [None]
  - Hepatic failure [None]
  - Mental status changes [None]
  - Shock [None]
  - Dialysis [None]
  - Confusional state [None]
  - Acute kidney injury [None]

NARRATIVE: CASE EVENT DATE: 20180316
